FAERS Safety Report 12458844 (Version 5)
Quarter: 2016Q3

REPORT INFORMATION
  Report Type: Spontaneous
  Country: CA (occurrence: CA)
  Receive Date: 20160613
  Receipt Date: 20160725
  Transmission Date: 20161109
  Serious: Yes (Other)
  Sender: FDA-Public Use
  Company Number: CA-009507513-1601CAN002016

PATIENT
  Age: 58 Year
  Sex: Female

DRUGS (4)
  1. ONCOTICE [Suspect]
     Active Substance: BACILLUS CALMETTE-GUERIN SUBSTRAIN TICE LIVE ANTIGEN
     Dosage: 1-8 X 10^8 CFU, QW
     Route: 043
     Dates: start: 20151112, end: 20151210
  2. ONCOTICE [Suspect]
     Active Substance: BACILLUS CALMETTE-GUERIN SUBSTRAIN TICE LIVE ANTIGEN
     Dosage: 1-8 X 10^8 CFU, QW
     Route: 043
     Dates: start: 20151112, end: 20151210
  3. ONCOTICE [Suspect]
     Active Substance: BACILLUS CALMETTE-GUERIN SUBSTRAIN TICE LIVE ANTIGEN
     Dosage: UNK, QW
     Route: 043
     Dates: start: 20140918, end: 20141030
  4. ONCOTICE [Suspect]
     Active Substance: BACILLUS CALMETTE-GUERIN SUBSTRAIN TICE LIVE ANTIGEN
     Indication: BLADDER CANCER
     Dosage: 1-8 X 10^8 CFU, QW
     Route: 043
     Dates: start: 20151112, end: 20151210

REACTIONS (3)
  - Influenza like illness [Recovered/Resolved]
  - Arthralgia [Recovered/Resolved]
  - Bacterial sepsis [Unknown]

NARRATIVE: CASE EVENT DATE: 201511
